FAERS Safety Report 9991910 (Version 1)
Quarter: 2014Q1

REPORT INFORMATION
  Report Type: Spontaneous
  Country: US (occurrence: US)
  Receive Date: 20140310
  Receipt Date: 20140310
  Transmission Date: 20141002
  Serious: No
  Sender: FDA-Public Use
  Company Number: US-VIIV HEALTHCARE LIMITED-A1053233A

PATIENT
  Age: 36 Year
  Sex: Male

DRUGS (4)
  1. TIVICAY [Suspect]
     Indication: HIV INFECTION
     Dosage: 50MG PER DAY
     Route: 048
     Dates: start: 201308
  2. TRUVADA [Concomitant]
  3. PRISTIQ [Concomitant]
  4. BONTRIL [Concomitant]

REACTIONS (2)
  - Crying [Unknown]
  - Depression [Unknown]
